FAERS Safety Report 6295954-5 (Version None)
Quarter: 2009Q3

REPORT INFORMATION
  Report Type: 
  Country: None (occurrence: None)
  Receive Date: 20090803
  Receipt Date: 20090803
  Transmission Date: 20100115
  Serious: Yes (Death)
  Sender: FDA-Public Use
  Company Number: None

PATIENT
  Age: 66 Year
  Sex: Female
  Weight: 57.6068 kg

DRUGS (2)
  1. FENTANYL [Suspect]
     Indication: ADENOID CYSTIC CARCINOMA
     Dosage: 100MCG APPLY 1 PATCH EVER TOP
     Route: 061
     Dates: start: 20090516, end: 20090629
  2. FENTANYL-100 [Suspect]
     Dosage: 50MCG APPLY 1 PATCH EVER TOP
     Route: 061
     Dates: start: 20090630, end: 20090704

REACTIONS (1)
  - DEATH [None]
